FAERS Safety Report 15441637 (Version 3)
Quarter: 2018Q4

REPORT INFORMATION
  Report Type: Spontaneous
  Country: AU (occurrence: AU)
  Receive Date: 20180928
  Receipt Date: 20181012
  Transmission Date: 20190204
  Serious: Yes (Other)
  Sender: FDA-Public Use
  Company Number: AU-GUERBET-AU-20180054

PATIENT
  Age: 65 Year
  Sex: Female
  Weight: 61 kg

DRUGS (2)
  1. OPTIRAY 350 [Suspect]
     Active Substance: IOVERSOL
     Route: 042
     Dates: start: 20180917, end: 20180917
  2. OPTIRAY 350 [Suspect]
     Active Substance: IOVERSOL
     Indication: ANGIOCARDIOGRAM
     Route: 042
     Dates: start: 20180917, end: 20180917

REACTIONS (3)
  - Urticaria [Recovered/Resolved]
  - Skin reaction [Recovered/Resolved]
  - Pruritus [Recovered/Resolved]

NARRATIVE: CASE EVENT DATE: 20180918
